FAERS Safety Report 6299891-1 (Version None)
Quarter: 2009Q3

REPORT INFORMATION
  Report Type: 
  Country: None (occurrence: None)
  Receive Date: 20090806
  Receipt Date: 20090724
  Transmission Date: 20100115
  Serious: Yes (Hospitalization, Disabling, Other)
  Sender: FDA-Public Use
  Company Number: PHMT2006CA01800

PATIENT
  Sex: Male

DRUGS (6)
  1. CLOZARIL [Suspect]
     Indication: SCHIZOPHRENIA
     Dosage: 100 MG QAM, 200 MG QPM, 250 MG QHS
     Route: 048
     Dates: start: 19980101, end: 20060101
  2. EPIVAL [Concomitant]
  3. COGENTIN [Concomitant]
     Dosage: INCREASED DOSE
  4. LOXAPAC [Concomitant]
  5. HALDOL [Concomitant]
  6. ATIVAN [Concomitant]

REACTIONS (12)
  - AGGRESSION [None]
  - CANDIDIASIS [None]
  - DYSPHONIA [None]
  - HYPERHIDROSIS [None]
  - HYPERTHERMIA [None]
  - MENTAL DISORDER [None]
  - NEUTROPHIL COUNT DECREASED [None]
  - PLEURAL DECORTICATION [None]
  - PNEUMONIA [None]
  - PYOTHORAX [None]
  - THORACIC CAVITY DRAINAGE [None]
  - WHITE BLOOD CELL COUNT DECREASED [None]
